FAERS Safety Report 7227375-2 (Version None)
Quarter: 2010Q4

REPORT INFORMATION
  Report Type: 
  Country: None (occurrence: None)
  Receive Date: 20101126
  Receipt Date: 20100916
  Transmission Date: 20110411
  Serious: No
  Sender: FDA-Public Use
  Company Number: 315392

PATIENT
  Age: 27 Year
  Sex: Male

DRUGS (1)
  1. VICTOZA [Suspect]
     Indication: PRODUCT USED FOR UNKNOWN INDICATION
     Dosage: 0.6 MG, QD, SUBCUTANEOUS, 1 MG, QD, SUBCUTANEOUS
     Route: 058

REACTIONS (3)
  - ABDOMINAL DISCOMFORT [None]
  - DEVICE MISUSE [None]
  - INJECTION SITE RASH [None]
